FAERS Safety Report 12335969 (Version 1)
Quarter: 2016Q2

REPORT INFORMATION
  Report Type: Spontaneous
  Country: US (occurrence: None)
  Receive Date: 20160504
  Receipt Date: 20160504
  Transmission Date: 20160815
  Serious: Yes (Other)
  Sender: FDA-Public Use
  Company Number: None

PATIENT
  Age: 66 Year
  Sex: Female
  Weight: 61.24 kg

DRUGS (2)
  1. LATANOPROST BAUSCH AND LOMB [Suspect]
     Active Substance: LATANOPROST
     Indication: GLAUCOMA
     Dosage: AT BEDTIME INTO THE EYE
     Route: 031
     Dates: start: 20130101
  2. GENERAL MULTI VITAMIN AND MINERAL [Concomitant]

REACTIONS (1)
  - Dark circles under eyes [None]

NARRATIVE: CASE EVENT DATE: 20150101
